FAERS Safety Report 21134823 (Version 3)
Quarter: 2024Q3

REPORT INFORMATION
  Report Type: Report from Study
  Country: DE (occurrence: DE)
  Receive Date: 20220727
  Receipt Date: 20240710
  Transmission Date: 20241016
  Serious: Yes (Hospitalization)
  Sender: ABBVIE
  Company Number: DE-ABBVIE-22K-062-4481001-00

PATIENT
  Age: 57 Year
  Sex: Female
  Weight: 65 kg

DRUGS (12)
  1. RINVOQ [Suspect]
     Active Substance: UPADACITINIB
     Indication: Rheumatoid arthritis
     Route: 048
     Dates: start: 20220131
  2. METHOTREXATE [Concomitant]
     Active Substance: METHOTREXATE
     Indication: Product used for unknown indication
     Route: 058
     Dates: start: 20220106
  3. PREDNISOLONE [Concomitant]
     Active Substance: PREDNISOLONE
     Indication: Product used for unknown indication
     Route: 048
     Dates: start: 2014
  4. CELECOXIB [Concomitant]
     Active Substance: CELECOXIB
     Indication: Product used for unknown indication
     Dosage: TIME INTERVAL: AS NECESSARY
     Route: 048
     Dates: start: 201704
  5. OMEGA 3 [Concomitant]
     Active Substance: CAPSAICIN
     Indication: Prophylaxis
     Route: 048
     Dates: start: 201810
  6. ACETAMINOPHEN [Concomitant]
     Active Substance: ACETAMINOPHEN
     Indication: COVID-19
     Route: 048
     Dates: start: 20220321, end: 20220325
  7. MYRTALYL [Concomitant]
     Indication: Oral mucosal erythema
     Dosage: TIME INTERVAL: AS NECESSARY: MYRTLE TINCTURE
     Route: 061
     Dates: start: 20220429
  8. DEXPANTHENOL [Concomitant]
     Active Substance: DEXPANTHENOL
     Indication: Oral mucosal erythema
     Dosage: TIME INTERVAL: AS NECESSARY
     Route: 061
     Dates: start: 20220429
  9. PANTHENOL [Concomitant]
     Active Substance: PANTHENOL
     Indication: Oral mucosal erythema
     Dosage: TIME INTERVAL: AS NECESSARY
     Route: 048
     Dates: start: 20220429
  10. CHOLECALCIFEROL [Concomitant]
     Active Substance: CHOLECALCIFEROL
     Indication: Prophylaxis
     Route: 048
     Dates: start: 20220601
  11. ZINC [Concomitant]
     Active Substance: ZINC
     Indication: Prophylaxis
     Route: 048
     Dates: start: 20220601
  12. SELENIUM [Concomitant]
     Active Substance: SELENIUM
     Indication: Prophylaxis
     Route: 048
     Dates: start: 20220601

REACTIONS (1)
  - Scapula fracture [Recovered/Resolved]

NARRATIVE: CASE EVENT DATE: 20220718
